FAERS Safety Report 9809757 (Version 2)
Quarter: 2014Q1

REPORT INFORMATION
  Report Type: Spontaneous
  Country: US (occurrence: US)
  Receive Date: 20140110
  Receipt Date: 20140110
  Transmission Date: 20141002
  Serious: Yes (Other)
  Sender: FDA-Public Use
  Company Number: US-SANOFI-AVENTIS-2012SA073983

PATIENT
  Age: 63 Year
  Sex: Male
  Weight: 91 kg

DRUGS (16)
  1. CLOPIDOGREL BISULFATE [Suspect]
     Indication: ACUTE CORONARY SYNDROME
     Route: 048
     Dates: start: 20120823, end: 20120824
  2. ASPIRIN [Suspect]
     Indication: ACUTE CORONARY SYNDROME
     Route: 048
     Dates: start: 20120823, end: 20120823
  3. ASPIRIN [Suspect]
     Indication: ACUTE CORONARY SYNDROME
     Route: 048
     Dates: start: 20120831
  4. OTAMIXABAN [Suspect]
     Indication: ACUTE CORONARY SYNDROME
     Route: 042
     Dates: start: 20120823, end: 20120823
  5. GLYCERYL TRINITRATE [Concomitant]
  6. DONEPEZIL [Concomitant]
  7. FOSINOPRIL [Concomitant]
  8. ISOSORBIDE DINITRATE [Concomitant]
  9. LATANOPROST [Concomitant]
  10. METOPROLOL [Concomitant]
  11. MIRTAZAPINE [Concomitant]
  12. OLANZAPINE [Concomitant]
  13. ROSUVASTATIN [Concomitant]
  14. ZOLOFT [Concomitant]
  15. TRAZODONE [Concomitant]
  16. POLYVINYL ALCOHOL [Concomitant]

REACTIONS (2)
  - Post procedural haemorrhage [Recovered/Resolved]
  - Thrombocytopenia [Recovered/Resolved]
